FAERS Safety Report 6554851-8 (Version None)
Quarter: 2010Q1

REPORT INFORMATION
  Report Type: 
  Country: None (occurrence: None)
  Receive Date: 20100127
  Receipt Date: 20100120
  Transmission Date: 20100710
  Serious: Yes (Hospitalization)
  Sender: FDA-Public Use
  Company Number: BR-ABBOTT-10P-020-0620812-00

PATIENT
  Sex: Female
  Weight: 88 kg

DRUGS (4)
  1. HUMIRA [Suspect]
     Indication: CROHN'S DISEASE
     Dosage: INDUCTION DOSE: 80MG EACH 15 DAYS
     Route: 058
     Dates: end: 20090501
  2. HUMIRA [Suspect]
  3. PENTASA [Concomitant]
     Indication: CROHN'S DISEASE
     Route: 048
  4. METICORTEN [Concomitant]
     Indication: CROHN'S DISEASE
     Dosage: 0.5 EVERY 24 HOURS
     Route: 048

REACTIONS (6)
  - ANAEMIA [None]
  - DEVICE RELATED INFECTION [None]
  - HAEMOGLOBIN DECREASED [None]
  - INAPPROPRIATE SCHEDULE OF DRUG ADMINISTRATION [None]
  - PULMONARY OEDEMA [None]
  - THROMBOSIS [None]
